FAERS Safety Report 7082693-6 (Version None)
Quarter: 2010Q4

REPORT INFORMATION
  Report Type: 
  Country: None (occurrence: None)
  Receive Date: 20101104
  Receipt Date: 20101026
  Transmission Date: 20110411
  Serious: Yes (Other)
  Sender: FDA-Public Use
  Company Number: GB-JNJFOC-20101100061

PATIENT
  Age: 67 Year
  Sex: Female
  Weight: 77 kg

DRUGS (2)
  1. INFLIXIMAB, RECOMBINANT [Suspect]
     Indication: RHEUMATOID ARTHRITIS
     Dosage: STOPPED PRIOR TO 22-MAY-2008 (DATE NOT SPECIFIED)
     Route: 042
  2. METHOTREXATE [Concomitant]

REACTIONS (1)
  - CARCINOMA IN SITU OF SKIN [None]
